FAERS Safety Report 11291831 (Version 1)
Quarter: 2015Q3

REPORT INFORMATION
  Report Type: Spontaneous
  Country: IT (occurrence: IT)
  Receive Date: 20150722
  Receipt Date: 20150722
  Transmission Date: 20151125
  Serious: Yes (Other)
  Sender: FDA-Public Use
  Company Number: IT-ACTAVIS-2015-15091

PATIENT
  Age: 61 Year
  Sex: Male
  Weight: 84 kg

DRUGS (1)
  1. OXALIPLATIN (UNKNOWN) [Suspect]
     Active Substance: OXALIPLATIN
     Indication: COLON NEOPLASM
     Dosage: 20 MG, TOTAL
     Route: 042
     Dates: start: 20150629, end: 20150629

REACTIONS (3)
  - Pruritus [Recovering/Resolving]
  - Flushing [Recovering/Resolving]
  - Macroglossia [Recovering/Resolving]

NARRATIVE: CASE EVENT DATE: 20150629
